FAERS Safety Report 7337868-5 (Version None)
Quarter: 2011Q1

REPORT INFORMATION
  Report Type: 
  Country: None (occurrence: None)
  Receive Date: 20110308
  Receipt Date: 20110228
  Transmission Date: 20110831
  Serious: Yes (Hospitalization)
  Sender: FDA-Public Use
  Company Number: GR-ROCHE-762352

PATIENT
  Sex: Female
  Weight: 66 kg

DRUGS (12)
  1. HYDROXYCHLOROQUINE [Concomitant]
     Dates: start: 20100625
  2. ALFACALCIDOL [Concomitant]
  3. SIMVASTATIN [Concomitant]
  4. VALSARTAN [Concomitant]
  5. AMLODIPINE [Concomitant]
  6. IBANDRONIC ACID [Concomitant]
  7. METFORMIN [Concomitant]
  8. TOCILIZUMAB [Suspect]
     Indication: RHEUMATOID ARTHRITIS
     Dosage: DATE OF LAST DOSE PRIOR TO SAE: 10 FEB 2011;  DOSAGE FORM: 8 MG/KG BW
     Route: 042
     Dates: start: 20100104, end: 20110224
  9. SITAGLIPTIN [Concomitant]
  10. FOLIC ACID [Concomitant]
  11. BLINDED METHOTREXATE [Suspect]
     Indication: RHEUMATOID ARTHRITIS
     Route: 048
     Dates: start: 20100104, end: 20110224
  12. CLOPIDOGREL [Concomitant]

REACTIONS (1)
  - PANCREATITIS ACUTE [None]
